FAERS Safety Report 13296168 (Version 2)
Quarter: 2017Q1

REPORT INFORMATION
  Report Type: Spontaneous
  Country: US (occurrence: US)
  Receive Date: 20170304
  Receipt Date: 20170304
  Transmission Date: 20170428
  Serious: Yes (Other)
  Sender: FDA-Public Use
  Company Number: US-BRISTOL-MYERS SQUIBB COMPANY-BMS-2017-016728

PATIENT

DRUGS (1)
  1. OPDIVO [Suspect]
     Active Substance: NIVOLUMAB
     Indication: METASTATIC SQUAMOUS CELL CARCINOMA
     Dosage: 3 MG/KG, UNK
     Route: 065

REACTIONS (5)
  - Fatigue [Unknown]
  - Rash [Unknown]
  - Anaemia [Unknown]
  - Malignant neoplasm progression [Unknown]
  - Hypothyroidism [Unknown]
